FAERS Safety Report 11398647 (Version 1)
Quarter: 2015Q3

REPORT INFORMATION
  Report Type: Report from Study
  Country: NZ (occurrence: NZ)
  Receive Date: 20150820
  Receipt Date: 20150820
  Transmission Date: 20151125
  Serious: Yes (Other)
  Sender: FDA-Public Use
  Company Number: PHHY2015NZ098777

PATIENT
  Age: 18 Year
  Sex: Male

DRUGS (1)
  1. CLOZARIL [Suspect]
     Active Substance: CLOZAPINE
     Indication: SCHIZOPHRENIA
     Dosage: UNK
     Route: 048
     Dates: start: 20140325

REACTIONS (7)
  - Influenza [Unknown]
  - White blood cell count decreased [Recovered/Resolved]
  - Mean cell haemoglobin decreased [Unknown]
  - Mean cell haemoglobin decreased [Recovered/Resolved]
  - Neutrophil count decreased [Recovered/Resolved]
  - Mean cell volume decreased [Recovered/Resolved]
  - Mean cell volume decreased [Not Recovered/Not Resolved]

NARRATIVE: CASE EVENT DATE: 20150810
